FAERS Safety Report 8327949-1 (Version None)
Quarter: 2012Q2

REPORT INFORMATION
  Report Type: 
  Country: None (occurrence: None)
  Receive Date: 20120502
  Receipt Date: 20120423
  Transmission Date: 20120825
  Serious: Yes (Hospitalization)
  Sender: FDA-Public Use
  Company Number: US-BAYER-2011-107630

PATIENT
  Age: 20 Year
  Sex: Female
  Weight: 48.98 kg

DRUGS (6)
  1. YASMIN [Suspect]
     Indication: MENSTRUATION IRREGULAR
     Dosage: UNK
     Route: 048
     Dates: start: 20060101, end: 20090101
  2. IBUPROFEN [Concomitant]
     Indication: PAIN
  3. SULFAMETHOXAZOLE AND TRIMETHOPRIM [Concomitant]
  4. DIPHENOXYLATE/ATROPINE [ATROPINE SULFATE,DIPHENOXYLATE HYDROCHLORI [Concomitant]
  5. DROSPIRENONE AND ETHINYL ESTRADIOL [Suspect]
     Indication: MENSTRUATION IRREGULAR
     Dosage: UNK
     Route: 048
     Dates: start: 20060101, end: 20090101
  6. HYOMAX-SL [Concomitant]

REACTIONS (4)
  - CHOLECYSTITIS ACUTE [None]
  - INJURY [None]
  - PAIN [None]
  - GALLBLADDER DISORDER [None]
